FAERS Safety Report 18346626 (Version 6)
Quarter: 2023Q2

REPORT INFORMATION
  Report Type: Spontaneous
  Country: US (occurrence: US)
  Receive Date: 20201005
  Receipt Date: 20230627
  Transmission Date: 20230722
  Serious: Yes (Other)
  Sender: FDA-Public Use
  Company Number: US-PFIZER INC-2020383336

PATIENT
  Age: 68 Year
  Sex: Female
  Weight: 124.71 kg

DRUGS (1)
  1. XELJANZ XR [Suspect]
     Active Substance: TOFACITINIB CITRATE
     Dosage: 11 MG

REACTIONS (3)
  - Diabetes mellitus [Not Recovered/Not Resolved]
  - Spinal operation [Unknown]
  - Memory impairment [Unknown]
